FAERS Safety Report 17960323 (Version 3)
Quarter: 2020Q3

REPORT INFORMATION
  Report Type: Report from Study
  Country: FR (occurrence: FR)
  Receive Date: 20200629
  Receipt Date: 20200805
  Transmission Date: 20201103
  Serious: Yes (Other)
  Sender: FDA-Public Use
  Company Number: FR-US-PROVELL PHARMACEUTICALS LLC-9166599

PATIENT
  Age: 27 Year
  Sex: Female
  Weight: 53 kg

DRUGS (12)
  1. LEVOTHYROX [Suspect]
     Active Substance: LEVOTHYROXINE
     Dosage: 112 (UNSPECIFIED UNIT
     Dates: start: 202007
  2. LEVOTHYROX [Suspect]
     Active Substance: LEVOTHYROXINE
     Dosage: 118.5 (UNSPECIFIED UNITS)
     Dates: start: 202007
  3. LEVOTHYROX [Suspect]
     Active Substance: LEVOTHYROXINE
     Dosage: 112 (UNITS UNSPECIFIED)
     Dates: start: 20200606
  4. LEVOTHYROX [Suspect]
     Active Substance: LEVOTHYROXINE
     Dosage: 112 (UNITS UNSPECIFIED)
     Dates: start: 20200608
  5. LEVOTHYROX [Suspect]
     Active Substance: LEVOTHYROXINE
     Dosage: 125 (UNITS UNSPECIFIED)
     Dates: start: 20200607
  6. LEVOTHYROX [Suspect]
     Active Substance: LEVOTHYROXINE
     Dosage: 118.5 (UNITS UNSPECIFIED)
     Dates: start: 20200609
  7. LEVOTHYROX [Suspect]
     Active Substance: LEVOTHYROXINE
     Dosage: 112 (UNSPECIFIED UNITS)
     Dates: start: 20200717
  8. LEVOTHYROX [Suspect]
     Active Substance: LEVOTHYROXINE
     Indication: AUTOIMMUNE THYROIDITIS
     Dates: start: 201911
  9. LEVOTHYROX [Suspect]
     Active Substance: LEVOTHYROXINE
     Dosage: LEVOTHYROX 100/112 ONE DAY OUT OF THREE DAYS FOR A WEEK
     Dates: start: 2020
  10. LEVOTHYROX [Suspect]
     Active Substance: LEVOTHYROXINE
     Dosage: LEVOTHYROX 112 EVERY DAY
     Dates: start: 20200403, end: 20200529
  11. LEVOTHYROX [Suspect]
     Active Substance: LEVOTHYROXINE
     Dosage: LEVOTHYROX AT 118 (UNITS UNSPECIFIED), DOSE INCREASED
     Dates: start: 202005
  12. LEVOTHYROX [Suspect]
     Active Substance: LEVOTHYROXINE
     Dosage: 125 (UNITS UNSPECIFIED)
     Dates: start: 20200530, end: 20200605

REACTIONS (34)
  - Gastric disorder [Recovered/Resolved]
  - Eating disorder [Unknown]
  - Insomnia [Unknown]
  - General physical health deterioration [Unknown]
  - Dyspnoea [Unknown]
  - Head discomfort [Unknown]
  - Neck pain [Unknown]
  - Anxiety [Recovered/Resolved]
  - Crying [Recovered/Resolved]
  - Thyroid function test abnormal [Unknown]
  - Antinuclear antibody increased [Unknown]
  - Malabsorption [Unknown]
  - Blood pressure abnormal [Unknown]
  - Heat stroke [Unknown]
  - Hyperthyroidism [Recovered/Resolved]
  - Drug interaction [Unknown]
  - Fatigue [Unknown]
  - Intentional product use issue [Unknown]
  - Depression [Unknown]
  - Tetany [Unknown]
  - Thyroid operation [Unknown]
  - Hot flush [Unknown]
  - Weight decreased [Unknown]
  - Autoimmune disorder [Unknown]
  - Hypothyroidism [Recovered/Resolved]
  - Feeling abnormal [Unknown]
  - Mental disorder [Unknown]
  - Tachycardia [Not Recovered/Not Resolved]
  - Stress [Unknown]
  - Vitamin D deficiency [Unknown]
  - Product dose omission issue [Unknown]
  - Skin laceration [Unknown]
  - Heart rate increased [Unknown]
  - Nervousness [Unknown]

NARRATIVE: CASE EVENT DATE: 2019
